FAERS Safety Report 9126950 (Version 1)
Quarter: 2013Q1

REPORT INFORMATION
  Report Type: Spontaneous
  Country: MX (occurrence: MX)
  Receive Date: 20130228
  Receipt Date: 20130228
  Transmission Date: 20140127
  Serious: Yes (Death)
  Sender: FDA-Public Use
  Company Number: PHHY2013MX019525

PATIENT
  Age: 54 Year
  Sex: Female

DRUGS (1)
  1. EXFORGE HCT [Suspect]
     Indication: HYPERTENSION
     Dosage: 1 DF (160 MG VAL/ 5MG AMLO/ 12.5MG HCT)
     Route: 048
     Dates: end: 201301

REACTIONS (1)
  - Cardiac disorder [Fatal]
